FAERS Safety Report 8902682 (Version 1)
Quarter: 2012Q4

REPORT INFORMATION
  Report Type: 
  Country: BE (occurrence: BE)
  Receive Date: 20121112
  Receipt Date: 20121112
  Transmission Date: 20130627
  Serious: Yes (Other)
  Sender: FDA-Public Use
  Company Number: BE-SHIRE-ALL1-2012-05560

PATIENT
  Age: 60 Year
  Sex: Female

DRUGS (1)
  1. XAGRID [Suspect]
     Indication: PRODUCT USED FOR UNKNOWN INDICATION
     Dosage: UNK, Unknown
     Route: 048

REACTIONS (3)
  - Glomerulonephritis [Unknown]
  - Anaemia [Unknown]
  - Hypertension [Unknown]
